FAERS Safety Report 6304725-2 (Version None)
Quarter: 2009Q3

REPORT INFORMATION
  Report Type: 
  Country: None (occurrence: None)
  Receive Date: 20090811
  Receipt Date: 20090804
  Transmission Date: 20100115
  Serious: Yes (Death)
  Sender: FDA-Public Use
  Company Number: A0801178A

PATIENT
  Sex: Female

DRUGS (11)
  1. AVANDARYL [Suspect]
     Indication: DRUG USE FOR UNKNOWN INDICATION
     Route: 048
     Dates: end: 20090721
  2. OTHER MEDICATIONS [Concomitant]
  3. SODIUM SULFATE [Concomitant]
  4. MAGNESIUM SULFATE [Concomitant]
  5. SODIUM CHLORIDE [Concomitant]
  6. POTASSIUM NITRATE [Concomitant]
  7. SORBITOL [Concomitant]
  8. INOSITOL [Concomitant]
  9. PROPRANOLOL [Concomitant]
  10. IRON [Concomitant]
  11. OTHER MEDICATIONS [Concomitant]

REACTIONS (1)
  - SHOCK HYPOGLYCAEMIC [None]
